FAERS Safety Report 7542409-3 (Version None)
Quarter: 2011Q2

REPORT INFORMATION
  Report Type: 
  Country: None (occurrence: None)
  Receive Date: 20110613
  Receipt Date: 20110603
  Transmission Date: 20111010
  Serious: Yes (Other)
  Sender: FDA-Public Use
  Company Number: US-ASTRAZENECA-2011SE28852

PATIENT
  Sex: Male

DRUGS (4)
  1. LITHIUM CARBONATE [Concomitant]
  2. SEROQUEL [Suspect]
     Indication: BIPOLAR DISORDER
     Route: 048
  3. ZYPREXA [Concomitant]
  4. LAMICTAL [Concomitant]

REACTIONS (4)
  - ROAD TRAFFIC ACCIDENT [None]
  - BRAIN NEOPLASM [None]
  - MONOPLEGIA [None]
  - LIMB OPERATION [None]
